FAERS Safety Report 17870464 (Version 1)
Quarter: 2020Q2

REPORT INFORMATION
  Report Type: Spontaneous
  Country: US (occurrence: US)
  Receive Date: 20200606
  Receipt Date: 20200606
  Transmission Date: 20200714
  Serious: Yes (Other)
  Sender: FDA-Public Use
  Company Number: None

PATIENT
  Age: 49 Year
  Sex: Female
  Weight: 69.75 kg

DRUGS (9)
  1. NP THYROID [Suspect]
     Active Substance: LEVOTHYROXINE\LIOTHYRONINE
     Indication: HYPOTHYROIDISM
     Dosage: ?          QUANTITY:90 TABLET(S);?
     Route: 048
     Dates: end: 20200515
  2. ARMOUR THYROID [Concomitant]
     Active Substance: THYROID, PORCINE
  3. AMERGE [Concomitant]
     Active Substance: NARATRIPTAN HYDROCHLORIDE
  4. VITAMIN D3 [Concomitant]
     Active Substance: CHOLECALCIFEROL
  5. VITAMIN B2 [Concomitant]
     Active Substance: RIBOFLAVIN
  6. FISH OIL [Concomitant]
     Active Substance: FISH OIL
  7. VITAMIN C [Concomitant]
     Active Substance: ASCORBIC ACID
  8. REMERON [Concomitant]
     Active Substance: MIRTAZAPINE
  9. MAGNESIUM [Concomitant]
     Active Substance: MAGNESIUM

REACTIONS (16)
  - Abdominal pain [None]
  - Hyperhidrosis [None]
  - Chest pain [None]
  - Insomnia [None]
  - Mood swings [None]
  - Myalgia [None]
  - Hypoaesthesia [None]
  - Muscular weakness [None]
  - Migraine [None]
  - Vision blurred [None]
  - Diplopia [None]
  - Gastrooesophageal reflux disease [None]
  - Palpitations [None]
  - Dyspnoea [None]
  - Muscle fatigue [None]
  - Paraesthesia [None]

NARRATIVE: CASE EVENT DATE: 20191201
